FAERS Safety Report 4945504-8 (Version None)
Quarter: 2006Q1

REPORT INFORMATION
  Report Type: 
  Country: None (occurrence: None)
  Receive Date: 20060117
  Receipt Date: 20051011
  Transmission Date: 20060701
  Serious: Yes (Death)
  Sender: FDA-Public Use
  Company Number: A03200503232

PATIENT
  Age: 62 Year
  Sex: Female

DRUGS (4)
  1. PLAVIX [Suspect]
     Dosage: 75 MG - ORAL
     Route: 048
  2. ANGIOMAX [Suspect]
     Dosage: 250 MG/ 5 ML VIAL  - INTRAVENOUS NOS
     Route: 042
  3. INTEGRILIN [Suspect]
     Dosage: 20 MG/ 10 M VIAL - INTRACAVERNOUS
     Route: 017
  4. ASPIRIN [Suspect]
     Dosage: ORAL
     Route: 048

REACTIONS (5)
  - DYSPNOEA [None]
  - HAEMATEMESIS [None]
  - HAEMOTHORAX [None]
  - HYPOTENSION [None]
  - NAUSEA [None]
